FAERS Safety Report 21500113 (Version 1)
Quarter: 2022Q4

REPORT INFORMATION
  Report Type: Spontaneous
  Country: US (occurrence: None)
  Receive Date: 20221024
  Receipt Date: 20221024
  Transmission Date: 20230113
  Serious: Yes (Hospitalization)
  Sender: FDA-Public Use
  Company Number: US-FARMAPROD-202210-2032

PATIENT
  Sex: Male

DRUGS (2)
  1. OXERVATE [Suspect]
     Active Substance: CENEGERMIN-BKBJ
     Indication: Neurotrophic keratopathy
     Route: 047
     Dates: start: 20220919
  2. ERTAPENEM [Concomitant]
     Active Substance: ERTAPENEM

REACTIONS (4)
  - Foot amputation [Unknown]
  - Off label use [Unknown]
  - Eye pain [Unknown]
  - Foreign body sensation in eyes [Unknown]
